FAERS Safety Report 14779732 (Version 1)
Quarter: 2018Q2

REPORT INFORMATION
  Report Type: Spontaneous
  Country: US (occurrence: US)
  Receive Date: 20180419
  Receipt Date: 20180419
  Transmission Date: 20180711
  Serious: Yes (Other)
  Sender: FDA-Public Use
  Company Number: US-ASTRAZENECA-2018SE48629

PATIENT
  Sex: Female

DRUGS (1)
  1. BYDUREON BCISE [Suspect]
     Active Substance: EXENATIDE
     Dosage: UNKNOWN DOSE
     Route: 065

REACTIONS (5)
  - Cerebrovascular accident [Unknown]
  - Glycosylated haemoglobin increased [Unknown]
  - Neuropathy peripheral [Not Recovered/Not Resolved]
  - Inability to afford medication [Unknown]
  - Blindness unilateral [Unknown]
